FAERS Safety Report 18476543 (Version 1)
Quarter: 2020Q4

REPORT INFORMATION
  Report Type: Spontaneous
  Country: US (occurrence: US)
  Receive Date: 20201106
  Receipt Date: 20201106
  Transmission Date: 20210114
  Serious: No
  Sender: FDA-Public Use
  Company Number: US-SA-2020SA310996

PATIENT

DRUGS (4)
  1. HYDROXYZINE HCL [Concomitant]
     Active Substance: HYDROXYZINE HYDROCHLORIDE
  2. ADVIL [IBUPROFEN] [Concomitant]
     Active Substance: IBUPROFEN
  3. CLOBETASOL [Concomitant]
     Active Substance: CLOBETASOL
  4. DUPIXENT [Suspect]
     Active Substance: DUPILUMAB
     Indication: DERMATITIS ALLERGIC
     Dosage: 300 MG, QOW
     Route: 058
     Dates: start: 2017

REACTIONS (1)
  - Eczema [Unknown]
